FAERS Safety Report 6695828-1 (Version None)
Quarter: 2010Q2

REPORT INFORMATION
  Report Type: 
  Country: None (occurrence: None)
  Receive Date: 20100426
  Receipt Date: 20100413
  Transmission Date: 20101027
  Serious: Yes (Other)
  Sender: FDA-Public Use
  Company Number: DK-JNJFOC-20100405539

PATIENT

DRUGS (3)
  1. TOPIRAMATE [Suspect]
     Indication: DRUG EXPOSURE DURING PREGNANCY
     Route: 064
  2. LAMOTRIGINE [Suspect]
     Indication: DRUG EXPOSURE DURING PREGNANCY
  3. VALPROIC ACID [Suspect]
     Indication: DRUG EXPOSURE DURING PREGNANCY

REACTIONS (1)
  - PATENT DUCTUS ARTERIOSUS [None]
